FAERS Safety Report 5695736-9 (Version None)
Quarter: 2008Q2

REPORT INFORMATION
  Report Type: 
  Country: None (occurrence: None)
  Receive Date: 20080407
  Receipt Date: 20080327
  Transmission Date: 20081010
  Serious: Yes (Hospitalization)
  Sender: FDA-Public Use
  Company Number: US-SANOFI-SYNTHELABO-A03200801276

PATIENT

DRUGS (1)
  1. ELITEK [Suspect]
     Indication: DRUG USE FOR UNKNOWN INDICATION
     Dosage: UNK
     Route: 042
     Dates: start: 20080101

REACTIONS (2)
  - BLOOD URIC ACID INCREASED [None]
  - TUMOUR LYSIS SYNDROME [None]
